FAERS Safety Report 5677473-X (Version None)
Quarter: 2008Q1

REPORT INFORMATION
  Report Type: 
  Country: None (occurrence: None)
  Receive Date: 20080318
  Receipt Date: 20080311
  Transmission Date: 20080703
  Serious: Yes (Hospitalization)
  Sender: FDA-Public Use
  Company Number: WAES 0802USA05357

PATIENT
  Age: 48 Year
  Sex: Male
  Weight: 80.7403 kg

DRUGS (5)
  1. ZOCOR [Suspect]
     Indication: HYPERCHOLESTEROLAEMIA
     Dosage: PO
     Route: 048
     Dates: start: 20071221
  2. PLACEBO (UNSPECIFIED) UNK [Suspect]
     Indication: DYSLIPIDAEMIA
     Dosage: PO
     Route: 048
     Dates: start: 20071221
  3. PLACEBO (UNSPECIFIED) UNK [Suspect]
     Indication: HYPERCHOLESTEROLAEMIA
     Dosage: PO
     Route: 048
     Dates: start: 20071221
  4. PLACEBO (UNSPECIFIED) UNK [Suspect]
     Indication: DYSLIPIDAEMIA
     Dates: start: 20071221
  5. PLACEBO (UNSPECIFIED) UNK [Suspect]
     Indication: HYPERCHOLESTEROLAEMIA
     Dates: start: 20071221

REACTIONS (2)
  - PHLEBITIS [None]
  - PULMONARY EMBOLISM [None]
